FAERS Safety Report 4487214-X (Version None)
Quarter: 2004Q4

REPORT INFORMATION
  Report Type: 
  Country: None (occurrence: None)
  Receive Date: 20041022
  Receipt Date: 20041018
  Transmission Date: 20050328
  Serious: Yes (Death)
  Sender: FDA-Public Use
  Company Number: 2004CG02096

PATIENT
  Age: 84 Year
  Sex: Female
  Weight: 65 kg

DRUGS (3)
  1. OMEPRAZOLE [Suspect]
     Dosage: 20 MG QD PO
     Route: 048
     Dates: start: 20000701
  2. PREDNISOLONE [Suspect]
     Dosage: 7.5 MG QD PO
     Route: 048
     Dates: start: 19990701
  3. REMICADE [Suspect]
     Dosage: 200 MG INT IV
     Route: 042
     Dates: start: 20010615

REACTIONS (2)
  - CORONARY ARTERY THROMBOSIS [None]
  - MYOCARDIAL INFARCTION [None]
